FAERS Safety Report 8368506-0 (Version None)
Quarter: 2012Q2

REPORT INFORMATION
  Report Type: 
  Country: None (occurrence: None)
  Receive Date: 20120518
  Receipt Date: 20120508
  Transmission Date: 20120825
  Serious: Yes (Hospitalization)
  Sender: FDA-Public Use
  Company Number: US-BIOGENIDEC-2012BI015625

PATIENT
  Age: 43 Year
  Sex: Female

DRUGS (2)
  1. TYSABRI [Suspect]
     Indication: MULTIPLE SCLEROSIS
     Route: 042
     Dates: start: 20070607, end: 20100903
  2. TYSABRI [Suspect]
     Route: 042
     Dates: start: 20120316, end: 20120316

REACTIONS (3)
  - DECUBITUS ULCER [None]
  - VOCAL CORD DISORDER [None]
  - MULTIPLE SCLEROSIS RELAPSE [None]
